FAERS Safety Report 9364308 (Version 1)
Quarter: 2013Q2

REPORT INFORMATION
  Report Type: Spontaneous
  Country: US (occurrence: None)
  Receive Date: 20130619
  Receipt Date: 20130619
  Transmission Date: 20140414
  Serious: No
  Sender: FDA-Public Use
  Company Number: JPI-P-032900

PATIENT
  Age: 51 Year
  Sex: Female
  Weight: 88 kg

DRUGS (7)
  1. XYREM (500 MILLIGRAM/MILLILITERS, SOLUTION) (SODIUM OXYBATE) [Suspect]
     Indication: NARCOLEPSY
     Route: 048
     Dates: start: 20091106
  2. DIVALPROEX SODIUM [Concomitant]
  3. ESCITALOPRAM OXALATE [Concomitant]
  4. MODAFINIL [Concomitant]
  5. QUETIAPINE FUMARATE [Concomitant]
  6. ARIPRAZOLE [Concomitant]
  7. FLUTICASONE PROPIONATE [Concomitant]

REACTIONS (1)
  - Intervertebral disc protrusion [None]
